FAERS Safety Report 6901833-X (Version None)
Quarter: 2010Q3

REPORT INFORMATION
  Report Type: 
  Country: None (occurrence: None)
  Receive Date: 20100803
  Receipt Date: 20080310
  Transmission Date: 20110219
  Serious: Yes (Other)
  Sender: FDA-Public Use
  Company Number: US-PFIZER INC-2008023777

PATIENT
  Age: 68 Year
  Sex: Female

DRUGS (1)
  1. LYRICA [Suspect]
     Indication: NEURALGIA

REACTIONS (1)
  - HALLUCINATION, VISUAL [None]
